FAERS Safety Report 22636677 (Version 1)
Quarter: 2023Q2

REPORT INFORMATION
  Report Type: Spontaneous
  Country: FR (occurrence: FR)
  Receive Date: 20230623
  Receipt Date: 20230623
  Transmission Date: 20230721
  Serious: Yes (Hospitalization, Other)
  Sender: FDA-Public Use
  Company Number: None

PATIENT
  Age: 71 Year
  Sex: Female
  Weight: 45 kg

DRUGS (10)
  1. KEYTRUDA [Suspect]
     Active Substance: PEMBROLIZUMAB
     Indication: Metastatic malignant melanoma
     Dosage: 400 MILLIGRAM, ONCE
     Route: 042
     Dates: start: 20230308, end: 20230308
  2. PLAVIX [Concomitant]
     Active Substance: CLOPIDOGREL BISULFATE
     Route: 048
     Dates: start: 20230304
  3. FOLIC ACID [Concomitant]
     Active Substance: FOLIC ACID
     Dosage: 5 MG MORNING, NOON AND EVENING
     Route: 048
     Dates: start: 2023
  4. PYRIDOXINE HYDROCHLORIDE [Concomitant]
     Active Substance: PYRIDOXINE HYDROCHLORIDE
     Dosage: 250 MG MORNING AND EVENING
     Route: 048
     Dates: start: 2023
  5. NICOTINAMIDE [Concomitant]
     Active Substance: NIACINAMIDE
     Dosage: 500 MG MORNING AND EVENING
     Route: 048
     Dates: start: 2023
  6. NICOTINE EG [Concomitant]
     Route: 062
     Dates: start: 2023
  7. SKENAN [Concomitant]
     Active Substance: MORPHINE SULFATE
     Dosage: FORMULATION: PROLONGED-RELEASE MICROGRANULES IN CAPSULE
     Route: 048
     Dates: start: 2023
  8. ASPIRIN [Concomitant]
     Active Substance: ASPIRIN
     Route: 048
     Dates: start: 20230304
  9. TAHOR [Concomitant]
     Active Substance: ATORVASTATIN CALCIUM
     Route: 048
     Dates: start: 20230304
  10. RAMIPRIL [Concomitant]
     Active Substance: RAMIPRIL
     Dosage: 2.5 MG MORNING AND EVENING
     Route: 048
     Dates: start: 20230304

REACTIONS (2)
  - Myositis [Recovering/Resolving]
  - Immune-mediated cholestasis [Recovering/Resolving]

NARRATIVE: CASE EVENT DATE: 20230419
